FAERS Safety Report 6176679-3 (Version None)
Quarter: 2009Q2

REPORT INFORMATION
  Report Type: 
  Country: None (occurrence: None)
  Receive Date: 20090501
  Receipt Date: 20090501
  Transmission Date: 20091009
  Serious: Yes (Hospitalization, Other)
  Sender: FDA-Public Use
  Company Number: US-PFIZER INC-2009174117

PATIENT
  Sex: Female
  Weight: 100.68 kg

DRUGS (27)
  1. LIPITOR [Suspect]
     Indication: BLOOD CHOLESTEROL INCREASED
     Dosage: 40 MG, 1X/DAY
     Route: 048
     Dates: start: 20020101, end: 20040101
  2. ZOCOR [Suspect]
     Dosage: UNK
     Dates: start: 20080201, end: 20080201
  3. ZETIA [Suspect]
     Indication: BLOOD CHOLESTEROL INCREASED
     Dosage: 10 MG, UNK
  4. WELCHOL [Suspect]
     Indication: BLOOD CHOLESTEROL INCREASED
  5. ANASTROZOLE [Concomitant]
     Indication: BREAST CANCER
     Dosage: UNK
  6. TAMOXIFEN [Concomitant]
     Indication: BREAST CANCER
  7. DIGOXIN [Concomitant]
     Dosage: UNK
  8. PAXIL [Concomitant]
     Dosage: UNK
  9. LASIX [Concomitant]
     Indication: HYPERTENSION
     Dosage: 20 MG, UNK
  10. SKELAXIN [Concomitant]
     Dosage: UNK
  11. CELEBREX [Concomitant]
     Dosage: UNK
  12. GLIPIZIDE [Concomitant]
     Dosage: UNK
  13. TRAZODONE [Concomitant]
     Dosage: UNK
  14. KLOR-CON [Concomitant]
     Dosage: 20 MEQ, UNK
  15. ASPIRIN [Concomitant]
     Dosage: UNK
  16. CERTAGEN [Concomitant]
     Dosage: UNK
  17. COZAAR [Concomitant]
  18. AMLODIPINE [Concomitant]
     Indication: HYPERTENSION
     Dosage: 10 MG, UNK
  19. CLONIDINE [Concomitant]
     Indication: HYPERTENSION
     Dosage: 1 MG, UNK
  20. NAPROXEN [Concomitant]
     Indication: ARTHRITIS
     Dosage: 500 MG, UNK
  21. ALPRAZOLAM [Concomitant]
     Indication: ANXIETY
     Dosage: UNK
  22. DOCUSATE [Concomitant]
     Dosage: 100 MG, 2X/DAY
  23. CARVEDILOL [Concomitant]
     Dosage: UNK
  24. WARFARIN [Concomitant]
     Dosage: UNK
  25. OMEPRAZOLE [Concomitant]
     Indication: HIATUS HERNIA
     Dosage: 20 MG, UNK
  26. OMEPRAZOLE [Concomitant]
     Indication: GASTROINTESTINAL ULCER
  27. TRAMADOL [Concomitant]
     Indication: PAIN
     Dosage: 50 MG, UNK

REACTIONS (14)
  - BLOOD CHOLESTEROL INCREASED [None]
  - CARDIAC FAILURE [None]
  - DECREASED ACTIVITY [None]
  - DIABETES MELLITUS [None]
  - DRUG LEVEL DECREASED [None]
  - DYSPNOEA [None]
  - GAIT DISTURBANCE [None]
  - HEPATIC ENZYME INCREASED [None]
  - LIVER DISORDER [None]
  - MULTI-ORGAN FAILURE [None]
  - MUSCLE ATROPHY [None]
  - MYALGIA [None]
  - RENAL DISORDER [None]
  - RENAL FAILURE [None]
